FAERS Safety Report 17048293 (Version 1)
Quarter: 2019Q4

REPORT INFORMATION
  Report Type: Spontaneous
  Country: US (occurrence: US)
  Receive Date: 20191118
  Receipt Date: 20191118
  Transmission Date: 20200122
  Serious: Yes (Hospitalization)
  Sender: FDA-Public Use
  Company Number: None

PATIENT
  Sex: Male

DRUGS (17)
  1. CAPECITABINE. [Suspect]
     Active Substance: CAPECITABINE
     Indication: NEOPLASM SKIN
     Route: 048
     Dates: start: 20180323
  2. CIPROFLOXACIN. [Concomitant]
     Active Substance: CIPROFLOXACIN
  3. TEMOZOLOMIDE. [Concomitant]
     Active Substance: TEMOZOLOMIDE
  4. LATANOPROST. [Concomitant]
     Active Substance: LATANOPROST
  5. TIMOLOL. [Concomitant]
     Active Substance: TIMOLOL
  6. CHOLESTYRAM [Concomitant]
     Active Substance: CHOLESTYRAMINE
  7. METHOTREXATE. [Concomitant]
     Active Substance: METHOTREXATE
  8. ENOXAPARIN [Concomitant]
     Active Substance: ENOXAPARIN
  9. FOLIC ACID. [Concomitant]
     Active Substance: FOLIC ACID
  10. BYSTOLIC [Concomitant]
     Active Substance: NEBIVOLOL HYDROCHLORIDE
  11. PANTOPRAZOLE [Concomitant]
     Active Substance: PANTOPRAZOLE
  12. CAPECITABINE. [Suspect]
     Active Substance: CAPECITABINE
     Indication: NEOPLASM SKIN
     Route: 048
     Dates: start: 20180323
  13. POT CHLORIDE [Concomitant]
     Active Substance: POTASSIUM CHLORIDE
  14. VERTICAL [Concomitant]
     Active Substance: .ALPHA.-TOCOPHEROL SUCCINATE, D-\ASCORBIC ACID\CALCIUM CARBONATE\CHOLECALCIFEROL\CUPRIC OXIDE\CYANOCOBALAMIN CO-57\FOLIC ACID\IRON\NIACIN\PANTOTHENIC ACID\PYRIDOXINE HYDROCHLORIDE\RIBOFLAVIN\THIAMINE MONONITRATE\VITAMIN A PALMITATE\ZINC OXIDE
  15. PREDNISONE. [Concomitant]
     Active Substance: PREDNISONE
  16. METOPROLOL TARTRATE. [Concomitant]
     Active Substance: METOPROLOL TARTRATE
  17. PROCTO-MED [Concomitant]

REACTIONS (3)
  - Therapy cessation [None]
  - Headache [None]
  - Abdominal discomfort [None]
